FAERS Safety Report 13634646 (Version 2)
Quarter: 2019Q4

REPORT INFORMATION
  Report Type: Spontaneous
  Country: US (occurrence: US)
  Receive Date: 20170609
  Receipt Date: 20191010
  Transmission Date: 20200122
  Serious: Yes (Other)
  Sender: FDA-Public Use
  Company Number: US-AMGEN-USASP2017086252

PATIENT
  Sex: Female

DRUGS (2)
  1. ENBREL [Suspect]
     Active Substance: ETANERCEPT
     Indication: RHEUMATOID ARTHRITIS
     Dosage: 25 MILLIGRAM, QWK
     Route: 058
     Dates: end: 2014
  2. ENBREL [Suspect]
     Active Substance: ETANERCEPT
     Dosage: 50 MILLIGRAM, QWK
     Route: 065
     Dates: start: 201901

REACTIONS (5)
  - Rheumatoid arthritis [Unknown]
  - Product packaging issue [Unknown]
  - Surgery [Unknown]
  - Nephrolithiasis [Unknown]
  - Gastroenteritis [Unknown]

NARRATIVE: CASE EVENT DATE: 2019
